FAERS Safety Report 8975239 (Version 1)
Quarter: 2012Q4

REPORT INFORMATION
  Report Type: 
  Country: US (occurrence: US)
  Receive Date: 20121219
  Receipt Date: 20121219
  Transmission Date: 20130627
  Serious: No
  Sender: FDA-Public Use
  Company Number: US-TARO-2012P1065689

PATIENT
  Sex: Female

DRUGS (1)
  1. FLUOROURACIL [Suspect]

REACTIONS (4)
  - Application site erythema [Unknown]
  - Application site irritation [Unknown]
  - Erythema [Unknown]
  - Inflammation [Unknown]
